FAERS Safety Report 4820696-X (Version None)
Quarter: 2005Q4

REPORT INFORMATION
  Report Type: 
  Country: None (occurrence: None)
  Receive Date: 20051103
  Receipt Date: 20051018
  Transmission Date: 20060501
  Serious: Yes (Death)
  Sender: FDA-Public Use
  Company Number: 2005-0008880

PATIENT
  Age: 58 Year
  Sex: Male

DRUGS (3)
  1. HEPSERA [Suspect]
     Indication: HEPATITIS B
     Dosage: 10 MG 1 IN 1 D ORAL
     Route: 048
  2. VIREAD [Suspect]
     Indication: HEPATITIS B
  3. LAMIVUDINE [Concomitant]

REACTIONS (13)
  - ALANINE AMINOTRANSFERASE INCREASED [None]
  - BLOOD ALBUMIN DECREASED [None]
  - BLOOD BILIRUBIN INCREASED [None]
  - COAGULOPATHY [None]
  - CONDITION AGGRAVATED [None]
  - DRUG RESISTANCE [None]
  - HEPATIC FAILURE [None]
  - INTERNATIONAL NORMALISED RATIO INCREASED [None]
  - REBOUND EFFECT [None]
  - RENAL FAILURE [None]
  - SEPSIS [None]
  - VIRAL INFECTION [None]
  - VIRAL MUTATION IDENTIFIED [None]
